FAERS Safety Report 20298536 (Version 4)
Quarter: 2022Q2

REPORT INFORMATION
  Report Type: Report from Study
  Country: US (occurrence: US)
  Receive Date: 20220105
  Receipt Date: 20220419
  Transmission Date: 20220721
  Serious: No
  Sender: FDA-Public Use
  Company Number: US-NOVARTISTESTPH-NVSC2022US001208

PATIENT
  Sex: Male

DRUGS (1)
  1. ZOLGENSMA [Suspect]
     Active Substance: ONASEMNOGENE ABEPARVOVEC-XIOI
     Indication: Spinal muscular atrophy
     Dosage: 1 DOSAGE FORM, QD (ONE SINGLE DOSE) (INTRAVENOUS- INTO BLOODSTREAM VIA VEIN) (OTHER FORMULATION: SUS
     Route: 042
     Dates: start: 20211231, end: 20211231

REACTIONS (2)
  - Hepatic enzyme increased [Unknown]
  - Vomiting [Unknown]
